FAERS Safety Report 20590741 (Version 1)
Quarter: 2022Q1

REPORT INFORMATION
  Report Type: Spontaneous
  Country: PT (occurrence: PT)
  Receive Date: 20220314
  Receipt Date: 20220314
  Transmission Date: 20220423
  Serious: Yes (Other)
  Sender: FDA-Public Use
  Company Number: PT-GLASSHOUSE PHARMACEUTICALS LIMITED CA-2022GLH00002

PATIENT
  Age: 59 Year
  Sex: Male

DRUGS (2)
  1. FLUOCINOLONE ACETONIDE [Suspect]
     Active Substance: FLUOCINOLONE ACETONIDE
     Indication: Diabetic retinal oedema
  2. UNSPECIFIED ANTI-VEGF INJECTIONS [Concomitant]

REACTIONS (1)
  - Glaucoma [Not Recovered/Not Resolved]
